FAERS Safety Report 4726505-1 (Version None)
Quarter: 2005Q3

REPORT INFORMATION
  Report Type: 
  Country: None (occurrence: None)
  Receive Date: 20050726
  Receipt Date: 20050713
  Transmission Date: 20060218
  Serious: Yes (Death)
  Sender: FDA-Public Use
  Company Number: 2005094838

PATIENT
  Age: 56 Year
  Sex: Male

DRUGS (2)
  1. SULPERAZONE (SULBACTAM, CEFOPERAZONE) [Suspect]
     Indication: CHOLECYSTITIS
     Dosage: INTRAVENOUS
     Route: 042
  2. METRONIDAZOLE [Concomitant]

REACTIONS (2)
  - CHOLANGITIS [None]
  - RENAL FAILURE ACUTE [None]
